FAERS Safety Report 5196108-6 (Version None)
Quarter: 2006Q4

REPORT INFORMATION
  Report Type: 
  Country: None (occurrence: None)
  Receive Date: 20061226
  Receipt Date: 20061221
  Transmission Date: 20070319
  Serious: Yes (Hospitalization)
  Sender: FDA-Public Use
  Company Number: HQWYE602207DEC06

PATIENT
  Age: 61 Year
  Sex: Female

DRUGS (3)
  1. PANTOPRAZOLE SODIUM [Suspect]
     Indication: GASTRIC DISORDER
     Dosage: 20 MG ORAL
     Route: 048
  2. PANTOPRAZOLE SODIUM [Suspect]
     Indication: PROPHYLAXIS
     Dosage: 20 MG ORAL
     Route: 048
  3. NABUMETONE [Concomitant]

REACTIONS (3)
  - DRUG INEFFECTIVE [None]
  - HELICOBACTER INFECTION [None]
  - MALLORY-WEISS SYNDROME [None]
